FAERS Safety Report 7648485-1 (Version None)
Quarter: 2011Q3

REPORT INFORMATION
  Report Type: 
  Country: None (occurrence: None)
  Receive Date: 20110801
  Receipt Date: 20110728
  Transmission Date: 20111222
  Serious: Yes (Death)
  Sender: FDA-Public Use
  Company Number: US-ABBOTT-11P-163-0841745-00

PATIENT
  Sex: Female

DRUGS (4)
  1. HUMIRA [Suspect]
     Indication: RHEUMATOID ARTHRITIS
     Route: 058
     Dates: start: 20060629, end: 20110701
  2. UNKNOWN MEDICATION [Concomitant]
     Indication: CARDIAC DISORDER
  3. UNKNOWN MEDICATIONS [Concomitant]
     Indication: NEPHROPATHY
  4. UNKNOWN MEDICATION [Concomitant]
     Indication: ARTHRITIS

REACTIONS (2)
  - DEATH [None]
  - RENAL FAILURE [None]
